FAERS Safety Report 6636041-3 (Version None)
Quarter: 2010Q1

REPORT INFORMATION
  Report Type: 
  Country: None (occurrence: None)
  Receive Date: 20100225
  Receipt Date: 20090113
  Transmission Date: 20100710
  Serious: Yes (Other)
  Sender: FDA-Public Use
  Company Number: US-JNJFOC-20090103069

PATIENT
  Sex: Male

DRUGS (1)
  1. MOTRIN IB [Suspect]
     Indication: DRUG USE FOR UNKNOWN INDICATION
     Dosage: 600-800MG

REACTIONS (1)
  - HAEMATEMESIS [None]
